FAERS Safety Report 7603344-5 (Version None)
Quarter: 2011Q3

REPORT INFORMATION
  Report Type: 
  Country: None (occurrence: None)
  Receive Date: 20110711
  Receipt Date: 20110711
  Transmission Date: 20111222
  Serious: Yes (Death)
  Sender: FDA-Public Use
  Company Number: None

PATIENT
  Age: 58 Year
  Sex: Male
  Weight: 130.6 kg

DRUGS (1)
  1. ACTIVASE [Suspect]

REACTIONS (1)
  - HAEMORRHAGE INTRACRANIAL [None]
